FAERS Safety Report 15336333 (Version 2)
Quarter: 2018Q3

REPORT INFORMATION
  Report Type: Report from Study
  Country: US (occurrence: US)
  Receive Date: 20180830
  Receipt Date: 20180911
  Transmission Date: 20181010
  Serious: Yes (Death, Hospitalization)
  Sender: FDA-Public Use
  Company Number: US-ACTELION-A-NJ2018-170188

PATIENT
  Age: 71 Year
  Sex: Female
  Weight: 70.75 kg

DRUGS (5)
  1. VELETRI [Suspect]
     Active Substance: EPOPROSTENOL
     Dosage: UNK
     Route: 042
  2. VELETRI [Suspect]
     Active Substance: EPOPROSTENOL
     Indication: PULMONARY ARTERIAL HYPERTENSION
     Dosage: 6 NG/KG, PER MIN
     Route: 042
     Dates: start: 201803
  3. LETAIRIS [Concomitant]
     Active Substance: AMBRISENTAN
  4. VELETRI [Suspect]
     Active Substance: EPOPROSTENOL
     Dosage: 11.5 NG/KG, PER MIN
     Route: 042
  5. ELIQUIS [Concomitant]
     Active Substance: APIXABAN

REACTIONS (12)
  - Death [Fatal]
  - Pulmonary arterial hypertension [Unknown]
  - Abdominal pain upper [Recovered/Resolved]
  - Device dislocation [Unknown]
  - Incorrect dose administered [Recovered/Resolved]
  - Condition aggravated [Unknown]
  - Flatulence [Recovered/Resolved]
  - Nausea [Unknown]
  - Skin lesion [Recovering/Resolving]
  - Catheter management [Unknown]
  - Catheter site pain [Unknown]
  - Vomiting [Unknown]

NARRATIVE: CASE EVENT DATE: 20180502
